FAERS Safety Report 7890012-8 (Version None)
Quarter: 2011Q4

REPORT INFORMATION
  Report Type: 
  Country: None (occurrence: None)
  Receive Date: 20111103
  Receipt Date: 20111027
  Transmission Date: 20120403
  Serious: Yes (Other)
  Sender: FDA-Public Use
  Company Number: PHHY2011JP95691

PATIENT
  Sex: Male

DRUGS (2)
  1. AFINITOR [Suspect]
     Indication: METASTATIC RENAL CELL CARCINOMA
     Dosage: 10 MG, DAILY
     Route: 048
     Dates: start: 20110217, end: 20110310
  2. AZUNOL [Concomitant]
     Indication: PROPHYLAXIS
     Route: 048
     Dates: start: 20110217, end: 20110310

REACTIONS (1)
  - ECZEMA [None]
